FAERS Safety Report 7770000-2 (Version None)
Quarter: 2011Q3

REPORT INFORMATION
  Report Type: 
  Country: None (occurrence: None)
  Receive Date: 20110922
  Receipt Date: 20100830
  Transmission Date: 20111222
  Serious: No
  Sender: FDA-Public Use
  Company Number: US-ASTRAZENECA-2008UW04642

PATIENT
  Age: 10503 Day
  Sex: Female
  Weight: 158.8 kg

DRUGS (21)
  1. SEROQUEL [Suspect]
     Dosage: 100 MG
     Route: 048
     Dates: start: 20030508, end: 20060427
  2. GLIMEPIRIDE [Concomitant]
     Route: 065
  3. CLONAZEPAM [Concomitant]
     Route: 065
  4. SEROQUEL [Suspect]
     Indication: DEPRESSION
     Route: 048
     Dates: start: 20000601, end: 20030501
  5. SEROQUEL [Suspect]
     Dosage: 100 MG
     Route: 048
     Dates: start: 20030508, end: 20060427
  6. TOPAMAX [Concomitant]
     Route: 065
  7. DOXEPIN [Concomitant]
     Route: 048
  8. ABILIFY [Concomitant]
     Route: 065
  9. TRILEPTAL [Concomitant]
     Route: 065
  10. ACETAMINOPHEN W/ CODEINE [Concomitant]
     Dosage: 3 TABLETS PER 4 HRS
     Route: 048
  11. LOTREL [Concomitant]
     Dosage: 10 MG TO 20 MG
     Route: 065
  12. ROZEREM [Concomitant]
     Route: 065
  13. IBUPROFEN [Concomitant]
     Dosage: 3200 MG TO 4800 MG
     Route: 048
  14. RISPERDAL [Concomitant]
     Indication: DEPRESSION
     Dates: start: 20060101, end: 20060101
  15. TRAMADOL HCL [Concomitant]
     Route: 065
  16. BONTRIL [Concomitant]
     Route: 065
  17. INVEGA [Concomitant]
     Route: 065
  18. SEROQUEL [Suspect]
     Indication: BIPOLAR DISORDER
     Route: 048
     Dates: start: 20000601, end: 20030501
  19. ABILIFY [Concomitant]
     Dates: start: 20100101
  20. NAPROXEN SODIUM [Concomitant]
     Route: 065
  21. RISPERDAL [Concomitant]
     Indication: BIPOLAR DISORDER
     Dates: start: 20060101, end: 20060101

REACTIONS (7)
  - DIABETIC COMPLICATION [None]
  - HAEMORRHAGE [None]
  - EPISTAXIS [None]
  - TYPE 2 DIABETES MELLITUS [None]
  - HYPERTENSION [None]
  - WEIGHT INCREASED [None]
  - OBESITY [None]
